FAERS Safety Report 18036167 (Version 1)
Quarter: 2020Q3

REPORT INFORMATION
  Report Type: Spontaneous
  Country: US (occurrence: US)
  Receive Date: 20200716
  Receipt Date: 20200716
  Transmission Date: 20201103
  Serious: Yes (Other)
  Sender: FDA-Public Use
  Company Number: None

PATIENT
  Age: 62 Year
  Sex: Male

DRUGS (1)
  1. GADOBENATE (GADOBENATE DIMEGLUMINE 529MG/ML INJ, SOLN) [Suspect]
     Active Substance: GADOBENATE DIMEGLUMINE
     Indication: MAGNETIC RESONANCE IMAGING
     Dates: start: 20190111, end: 20190111

REACTIONS (5)
  - Dizziness [None]
  - Respiratory depression [None]
  - Dyspnoea [None]
  - Anxiety [None]
  - Contrast media reaction [None]

NARRATIVE: CASE EVENT DATE: 20190111
